FAERS Safety Report 18735832 (Version 1)
Quarter: 2021Q1

REPORT INFORMATION
  Report Type: Spontaneous
  Country: FR (occurrence: FR)
  Receive Date: 20210113
  Receipt Date: 20210113
  Transmission Date: 20210419
  Serious: Yes (Other)
  Sender: FDA-Public Use
  Company Number: FR-PFIZER INC-2021011849

PATIENT
  Age: 63 Year
  Sex: Female
  Weight: 93 kg

DRUGS (4)
  1. APROVEL [Concomitant]
     Active Substance: IRBESARTAN
     Dosage: UNK
  2. LEXOMIL [Concomitant]
     Active Substance: BROMAZEPAM
     Dosage: UNK
  3. FEMARA [Suspect]
     Active Substance: LETROZOLE
     Indication: BREAST CANCER
     Dosage: 1 DF, 1X/DAY
     Route: 048
     Dates: start: 201805, end: 20190514
  4. AROMASINE [Suspect]
     Active Substance: EXEMESTANE
     Dosage: 1 DF, 1X/DAY
     Route: 048
     Dates: start: 20190514, end: 20201014

REACTIONS (1)
  - Cerebral venous thrombosis [Recovering/Resolving]

NARRATIVE: CASE EVENT DATE: 20201003
